FAERS Safety Report 10190589 (Version 2)
Quarter: 2014Q3

REPORT INFORMATION
  Report Type: Spontaneous
  Country: FR (occurrence: FR)
  Receive Date: 20140523
  Receipt Date: 20140807
  Transmission Date: 20150326
  Serious: Yes (Other)
  Sender: FDA-Public Use
  Company Number: FR-ROCHE-1404006

PATIENT
  Age: 50 Year
  Sex: Male
  Weight: 90 kg

DRUGS (9)
  1. INEXIUM [Concomitant]
     Active Substance: ESOMEPRAZOLE
     Dosage: A DAY
     Route: 065
  2. METOJECT [Concomitant]
     Active Substance: METHOTREXATE SODIUM
     Indication: RHEUMATOID ARTHRITIS
     Dosage: A WEEK
     Route: 065
  3. APRANAX [Concomitant]
     Active Substance: NAPROXEN
     Route: 065
  4. VENTOLINE [Concomitant]
     Active Substance: ALBUTEROL
     Route: 065
  5. CORTANCYL [Concomitant]
     Active Substance: PREDNISONE
     Dosage: A DAY
     Route: 065
  6. CACIT D3 [Concomitant]
     Active Substance: CALCIUM\CHOLECALCIFEROL
     Route: 065
  7. ROACTEMRA [Suspect]
     Active Substance: TOCILIZUMAB
     Indication: RHEUMATOID ARTHRITIS
     Route: 041
     Dates: start: 20140217, end: 20140217
  8. SPECIAFOLDINE [Concomitant]
     Active Substance: FOLIC ACID
     Indication: RHEUMATOID ARTHRITIS
     Dosage: A WEEK
     Route: 065
  9. SERETIDE [Concomitant]
     Active Substance: FLUTICASONE FUROATE\SALMETEROL XINAFOATE
     Route: 065

REACTIONS (2)
  - Tinnitus [Recovered/Resolved]
  - Hypertriglyceridaemia [Recovered/Resolved]

NARRATIVE: CASE EVENT DATE: 20140219
